FAERS Safety Report 4985352-6 (Version None)
Quarter: 2006Q1

REPORT INFORMATION
  Report Type: 
  Country: None (occurrence: None)
  Receive Date: 20060309
  Receipt Date: 20050422
  Transmission Date: 20060701
  Serious: Yes (Hospitalization)
  Sender: FDA-Public Use
  Company Number: 403013

PATIENT
  Age: 20 Year
  Sex: Male

DRUGS (1)
  1. ACCUTANE [Suspect]
     Indication: ACNE
     Dosage: 10 MG DAILY ORAL
     Route: 048
     Dates: start: 20050408, end: 20050416

REACTIONS (1)
  - BLOOD CREATINE PHOSPHOKINASE INCREASED [None]
